FAERS Safety Report 18042843 (Version 6)
Quarter: 2023Q1

REPORT INFORMATION
  Report Type: Report from Study
  Country: CY (occurrence: CY)
  Receive Date: 20200720
  Receipt Date: 20230117
  Transmission Date: 20230417
  Serious: Yes (Other)
  Sender: FDA-Public Use
  Company Number: CY-ROCHE-2636520

PATIENT
  Age: 35 Year
  Sex: Female
  Weight: 81 kg

DRUGS (41)
  1. TRASTUZUMAB [Suspect]
     Active Substance: TRASTUZUMAB
     Indication: HER2 positive breast cancer
     Dosage: 6 MILLIGRAM/KILOGRAM, Q3W
     Route: 042
     Dates: start: 20170802
  2. PERTUZUMAB [Suspect]
     Active Substance: PERTUZUMAB
     Indication: HER2 positive breast cancer
     Dosage: ON 03/MAY/2018, MOST RECENT DOSE
     Route: 042
     Dates: start: 20170802, end: 20180503
  3. CAPECITABINE [Suspect]
     Active Substance: CAPECITABINE
     Indication: Breast cancer
     Dosage: 2 GRAM, BID,DATE OF MOST RECENT DOSE:14/JUN/2018
     Route: 048
     Dates: start: 20180530, end: 20180604
  4. PARAPLATIN [Suspect]
     Active Substance: CARBOPLATIN
     Indication: HER2 positive breast cancer
     Dosage: Q3W, MOST RECENT DOSE ON 07/FEB/2019
     Route: 042
     Dates: start: 20181206, end: 20190207
  5. TAXOL [Suspect]
     Active Substance: PACLITAXEL
     Indication: HER2 positive breast cancer
     Dosage: ON 01/FEB/2018, MOST RECENT DOSE
     Route: 042
     Dates: start: 20170726, end: 20180201
  6. GEMZAR [Suspect]
     Active Substance: GEMCITABINE HYDROCHLORIDE
     Indication: HER2 positive breast cancer
     Dosage: MOST RECENT DOSE ON 07/FEB/2019
     Route: 042
     Dates: start: 20181206, end: 20190207
  7. NAVELBINE [Suspect]
     Active Substance: VINORELBINE TARTRATE
     Indication: Breast cancer
     Dosage: 25 MILLIGRAM/SQ. METER, QW
     Route: 042
     Dates: start: 20181011, end: 20181122
  8. NYSTATIN [Concomitant]
     Active Substance: NYSTATIN
     Dosage: UNK
     Route: 065
     Dates: start: 20170802, end: 20180208
  9. METOCLOPRAMIDE [Concomitant]
     Active Substance: METOCLOPRAMIDE
     Dosage: UNK
     Route: 065
     Dates: start: 20170802, end: 20180208
  10. METOCLOPRAMIDE [Concomitant]
     Active Substance: METOCLOPRAMIDE
     Dosage: UNK
     Route: 065
     Dates: start: 20180418, end: 20190402
  11. DEXAMETHASONE [Concomitant]
     Active Substance: DEXAMETHASONE
     Indication: Headache
     Dosage: UNK
     Route: 065
     Dates: start: 20170824, end: 20170824
  12. DEXAMETHASONE [Concomitant]
     Active Substance: DEXAMETHASONE
     Dosage: UNK
     Route: 065
     Dates: start: 20170831, end: 20170831
  13. DEXAMETHASONE [Concomitant]
     Active Substance: DEXAMETHASONE
     Dosage: UNK
     Route: 065
     Dates: start: 20170904, end: 20180201
  14. DEXAMETHASONE [Concomitant]
     Active Substance: DEXAMETHASONE
     Dosage: UNK
     Route: 065
     Dates: start: 20181004, end: 20181010
  15. DEXAMETHASONE [Concomitant]
     Active Substance: DEXAMETHASONE
     Dosage: UNK
     Route: 065
     Dates: start: 20181010, end: 20181012
  16. DEXAMETHASONE [Concomitant]
     Active Substance: DEXAMETHASONE
     Dosage: UNK
     Route: 065
     Dates: start: 20181012, end: 20181107
  17. DEXAMETHASONE [Concomitant]
     Active Substance: DEXAMETHASONE
     Dosage: UNK
     Route: 065
     Dates: start: 20181225, end: 20190111
  18. DEXAMETHASONE [Concomitant]
     Active Substance: DEXAMETHASONE
     Dosage: ONGOING = NOT CHECKED
     Route: 065
     Dates: start: 20190112, end: 20190117
  19. DEXAMETHASONE [Concomitant]
     Active Substance: DEXAMETHASONE
     Dosage: UNK
     Route: 065
     Dates: start: 20190118, end: 20190120
  20. DEXAMETHASONE [Concomitant]
     Active Substance: DEXAMETHASONE
     Dosage: UNK
     Route: 065
     Dates: start: 20190121, end: 20190123
  21. DEXAMETHASONE [Concomitant]
     Active Substance: DEXAMETHASONE
     Dosage: UNK
     Route: 065
     Dates: start: 20190124, end: 20190215
  22. DEXAMETHASONE [Concomitant]
     Active Substance: DEXAMETHASONE
     Dosage: UNK
     Route: 065
     Dates: start: 20190216, end: 20190402
  23. ONDANSETRON [Concomitant]
     Active Substance: ONDANSETRON
     Dosage: UNK
     Route: 065
     Dates: start: 20190117, end: 20190118
  24. MANNITOL [Concomitant]
     Active Substance: MANNITOL
     Indication: Headache
     Dosage: UNK
     Route: 065
     Dates: start: 20181206, end: 20181214
  25. PROMETHAZINE [Concomitant]
     Active Substance: PROMETHAZINE HYDROCHLORIDE
     Dosage: UNK
     Route: 065
     Dates: start: 20170824, end: 20170824
  26. PROMETHAZINE [Concomitant]
     Active Substance: PROMETHAZINE HYDROCHLORIDE
     Dosage: UNK
     Route: 065
     Dates: start: 20170904, end: 20180201
  27. IBUPROFEN [Concomitant]
     Active Substance: IBUPROFEN
     Indication: Headache
     Dosage: UNK
     Route: 065
     Dates: start: 20180124, end: 20190402
  28. FLUTICASONE PROPIONATE [Concomitant]
     Active Substance: FLUTICASONE PROPIONATE
     Dosage: UNK
     Route: 065
     Dates: start: 20170403, end: 20170903
  29. OMEPRAZOLE [Concomitant]
     Active Substance: OMEPRAZOLE
     Dosage: UNK
     Route: 065
     Dates: start: 20170802, end: 20190402
  30. RANITIDINE HYDROCHLORIDE [Concomitant]
     Active Substance: RANITIDINE HYDROCHLORIDE
     Dosage: UNK
     Route: 065
     Dates: start: 20170824, end: 20170824
  31. RANITIDINE HYDROCHLORIDE [Concomitant]
     Active Substance: RANITIDINE HYDROCHLORIDE
     Dosage: UNK
     Route: 065
     Dates: start: 20170904, end: 20180201
  32. SULFAMETHOXAZOLE\TRIMETHOPRIM [Concomitant]
     Active Substance: SULFAMETHOXAZOLE\TRIMETHOPRIM
     Dosage: UNK
     Route: 065
     Dates: start: 20181108, end: 20190402
  33. ZOLEDRONIC ACID [Concomitant]
     Active Substance: ZOLEDRONIC ACID
     Dosage: UNK
     Route: 065
     Dates: start: 20171012, end: 20190402
  34. CALCIUM [Concomitant]
     Active Substance: CALCIUM
     Dosage: ONGOING = NOT CHECKED
     Route: 065
     Dates: start: 20171012, end: 20190402
  35. CALCIUM [Concomitant]
     Active Substance: CALCIUM
     Dosage: UNK
     Route: 065
  36. ATROVENT [Concomitant]
     Active Substance: IPRATROPIUM BROMIDE
     Dosage: UNK
     Route: 065
     Dates: start: 20170403, end: 20170903
  37. ACETAMINOPHEN [Concomitant]
     Active Substance: ACETAMINOPHEN
     Indication: Headache
     Dosage: UNK
     Route: 065
     Dates: start: 20170819, end: 20190402
  38. ACETAMINOPHEN [Concomitant]
     Active Substance: ACETAMINOPHEN
     Indication: Arthralgia
     Dosage: UNK
     Route: 065
     Dates: start: 20180418, end: 20190402
  39. ACETAMINOPHEN [Concomitant]
     Active Substance: ACETAMINOPHEN
     Dosage: UNK
     Route: 065
     Dates: start: 20180920, end: 20181227
  40. ACETAMINOPHEN [Concomitant]
     Active Substance: ACETAMINOPHEN
     Dosage: UNK
     Route: 065
     Dates: start: 20190110, end: 20190315
  41. LACTULOSE [Concomitant]
     Active Substance: LACTULOSE
     Indication: Constipation
     Dosage: UNK
     Route: 065

REACTIONS (19)
  - Hypokalaemia [Recovered/Resolved]
  - Dry eye [Recovered/Resolved]
  - Gastrooesophageal reflux disease [Recovered/Resolved]
  - Paraesthesia [Recovered/Resolved]
  - Paronychia [Recovered/Resolved]
  - Rash [Recovered/Resolved]
  - Labyrinthitis [Recovered/Resolved]
  - Muscle spasms [Recovered/Resolved]
  - Arthralgia [Recovered/Resolved]
  - Influenza like illness [Recovered/Resolved]
  - Upper respiratory tract infection [Recovered/Resolved]
  - Diarrhoea [Recovered/Resolved]
  - Fatigue [Recovered/Resolved]
  - Constipation [Recovered/Resolved]
  - Headache [Recovered/Resolved]
  - Dizziness [Recovered/Resolved]
  - Hypersensitivity [Recovered/Resolved]
  - Vision blurred [Recovered/Resolved]
  - Limb deformity [Recovered/Resolved]

NARRATIVE: CASE EVENT DATE: 20170812
